FAERS Safety Report 5253229-7 (Version None)
Quarter: 2007Q1

REPORT INFORMATION
  Report Type: 
  Country: None (occurrence: None)
  Receive Date: 20070301
  Receipt Date: 20070226
  Transmission Date: 20070707
  Serious: Yes (Hospitalization)
  Sender: FDA-Public Use
  Company Number: US-GLAXOSMITHKLINE-A0640740A

PATIENT
  Age: 71 Year
  Sex: Female

DRUGS (4)
  1. CITRUCEL CAPLETS [Suspect]
     Indication: GASTROINTESTINAL DISORDER
     Route: 048
  2. CITRUCEL REGULAR SUSPENSION [Suspect]
     Indication: GASTROINTESTINAL DISORDER
     Route: 048
  3. VITAMIN D [Concomitant]
     Dosage: 400IU PER DAY
  4. CELEBREX [Concomitant]
     Dosage: 100MG PER DAY

REACTIONS (5)
  - BLOOD CREATININE INCREASED [None]
  - BLOOD POTASSIUM INCREASED [None]
  - COLONIC OBSTRUCTION [None]
  - GLOMERULAR FILTRATION RATE DECREASED [None]
  - VITAMIN D DECREASED [None]
